FAERS Safety Report 18303547 (Version 1)
Quarter: 2020Q3

REPORT INFORMATION
  Report Type: Spontaneous
  Country: GB (occurrence: GB)
  Receive Date: 20200923
  Receipt Date: 20200923
  Transmission Date: 20201103
  Serious: Yes (Death, Hospitalization)
  Sender: FDA-Public Use
  Company Number: GB-NOVOPROD-753216

PATIENT
  Sex: Male

DRUGS (2)
  1. LEVEMIR [Suspect]
     Active Substance: INSULIN DETEMIR
     Dosage: 44 UNITS IN ERROR
     Route: 065
  2. LEVEMIR [Suspect]
     Active Substance: INSULIN DETEMIR
     Indication: PRODUCT USED FOR UNKNOWN INDICATION
     Dosage: 4 UNITS
     Route: 065

REACTIONS (8)
  - Nerve injury [Fatal]
  - Acute kidney injury [Unknown]
  - Hypoglycaemic unconsciousness [Fatal]
  - Lower respiratory tract infection [Unknown]
  - Blood glucose increased [Unknown]
  - Confusional state [Unknown]
  - Product prescribing error [Fatal]
  - Overdose [Fatal]
